FAERS Safety Report 14430352 (Version 1)
Quarter: 2018Q1

REPORT INFORMATION
  Report Type: Spontaneous
  Country: JP (occurrence: JP)
  Receive Date: 20180123
  Receipt Date: 20180123
  Transmission Date: 20180509
  Serious: Yes (Hospitalization)
  Sender: FDA-Public Use
  Company Number: JP-ROCHE-2057486

PATIENT
  Age: 65 Year
  Sex: Female

DRUGS (1)
  1. VEMURAFENIB. [Suspect]
     Active Substance: VEMURAFENIB
     Indication: BRAF V600E MUTATION POSITIVE
     Route: 065

REACTIONS (3)
  - Amylase increased [Recovered/Resolved]
  - Acute hepatic failure [Recovering/Resolving]
  - Lipase increased [Recovered/Resolved]
